FAERS Safety Report 19815612 (Version 2)
Quarter: 2021Q3

REPORT INFORMATION
  Report Type: Report from Study
  Country: GB (occurrence: GB)
  Receive Date: 20210910
  Receipt Date: 20210917
  Transmission Date: 20211014
  Serious: Yes (Death)
  Sender: FDA-Public Use
  Company Number: NVSC2021GB203603

PATIENT
  Sex: Female

DRUGS (1)
  1. TRAMETINIB [Suspect]
     Active Substance: TRAMETINIB
     Indication: HISTIOCYTIC SARCOMA
     Dosage: UNK
     Route: 065

REACTIONS (2)
  - Histiocytic sarcoma [Fatal]
  - Malignant neoplasm progression [Fatal]
